FAERS Safety Report 4441594-X (Version None)
Quarter: 2004Q3

REPORT INFORMATION
  Report Type: 
  Country: None (occurrence: None)
  Receive Date: 20040907
  Receipt Date: 20040608
  Transmission Date: 20050211
  Serious: Yes (Life-Threatening, Hospitalization, Other)
  Sender: FDA-Public Use
  Company Number: PHBS2004JP07691

PATIENT
  Age: 32 Year
  Sex: Female
  Weight: 45 kg

DRUGS (6)
  1. TOFRANIL [Suspect]
     Dosage: 3 G, ONCE/SINGLE
     Route: 048
     Dates: start: 20030526, end: 20030526
  2. TOFRANIL [Suspect]
     Route: 048
  3. HALCION [Concomitant]
     Route: 048
     Dates: start: 20030526
  4. SEPAZON [Concomitant]
     Route: 048
     Dates: start: 20030526
  5. LEXOTAN [Concomitant]
     Route: 048
     Dates: start: 20030526
  6. ROHYPNOL [Concomitant]
     Route: 048
     Dates: start: 20030526

REACTIONS (13)
  - BLOOD PRESSURE DECREASED [None]
  - BRADYCARDIA [None]
  - CARDIAC ARREST [None]
  - COMA [None]
  - DEPRESSION [None]
  - ELECTROCARDIOGRAM QT PROLONGED [None]
  - GLOSSOPTOSIS [None]
  - OVERDOSE [None]
  - PULSE ABSENT [None]
  - SHOCK [None]
  - SOMNOLENCE [None]
  - SUICIDE ATTEMPT [None]
  - VENTRICULAR EXTRASYSTOLES [None]
